FAERS Safety Report 23763081 (Version 1)
Quarter: 2024Q2

REPORT INFORMATION
  Report Type: Report from Study
  Country: US (occurrence: US)
  Receive Date: 20240419
  Receipt Date: 20240419
  Transmission Date: 20240715
  Serious: Yes (Other)
  Sender: FDA-Public Use
  Company Number: US-TEVA-VS-3182497

PATIENT
  Age: 62 Year
  Sex: Female
  Weight: 77.55 kg

DRUGS (11)
  1. ACTIGALL [Suspect]
     Active Substance: URSODIOL
     Indication: Primary biliary cholangitis
     Route: 065
  2. OCALIVA [Suspect]
     Active Substance: OBETICHOLIC ACID
     Indication: Primary biliary cholangitis
     Route: 048
     Dates: start: 20171011, end: 20171113
  3. OCALIVA [Suspect]
     Active Substance: OBETICHOLIC ACID
     Indication: Primary biliary cholangitis
     Route: 048
     Dates: start: 20200113
  4. HYDROCORTISONE [Concomitant]
     Active Substance: HYDROCORTISONE
     Dosage: UNKNOWN
  5. VITAMIN E [Concomitant]
     Active Substance: .ALPHA.-TOCOPHEROL
     Dosage: UNKNOWN
  6. VITAMIN B1 [Concomitant]
     Active Substance: THIAMINE HYDROCHLORIDE
     Dosage: UNKNOWN
  7. VITAMIN A [Concomitant]
     Active Substance: VITAMIN A
  8. MAGNESIUM [Concomitant]
     Active Substance: MAGNESIUM
     Dosage: UNKNOWN
  9. HERBALS\TURMERIC [Concomitant]
     Active Substance: HERBALS\TURMERIC
     Dosage: UNKNOWN
  10. FLAXSEED [Concomitant]
     Active Substance: FLAX SEED
     Dosage: UNKNOWN
  11. SYNTHROID [Concomitant]
     Active Substance: LEVOTHYROXINE SODIUM
     Dosage: ONGOING

REACTIONS (2)
  - Brain fog [Not Recovered/Not Resolved]
  - Primary biliary cholangitis [Not Recovered/Not Resolved]

NARRATIVE: CASE EVENT DATE: 20230901
